FAERS Safety Report 24069272 (Version 1)
Quarter: 2024Q3

REPORT INFORMATION
  Report Type: Report from Study
  Country: CL (occurrence: CL)
  Receive Date: 20240710
  Receipt Date: 20240710
  Transmission Date: 20241017
  Serious: No
  Sender: ROCHE
  Company Number: CL-ROCHE-3357010

PATIENT
  Age: 62 Year
  Sex: Female

DRUGS (5)
  1. PHESGO [Suspect]
     Active Substance: HYALURONIDASE-ZZXF\PERTUZUMAB\TRASTUZUMAB
     Indication: HER2 positive breast cancer
     Dosage: DOSE WAS NOT REPORTED
     Route: 065
     Dates: start: 20230512
  2. AMLODIPINE [Concomitant]
     Active Substance: AMLODIPINE BESYLATE
     Dosage: FREQUENCY WAS NOT REPORTED
  3. CALCIUM CARBONATE\CHOLECALCIFEROL [Concomitant]
     Active Substance: CALCIUM CARBONATE\CHOLECALCIFEROL
     Dosage: FREQUENCY WAS NOT REPORTED
  4. VITAMIN D3 [Concomitant]
     Active Substance: CHOLECALCIFEROL
     Dosage: FREQUENCY WAS NOT REPORTED
  5. FILGRASTIM [Concomitant]
     Active Substance: FILGRASTIM
     Dosage: ADMINISTRATION AFTER PHESGO, FOR 3 DAYS. DOSE AND FREQUENCY NOT PROVIDED.
     Route: 058

REACTIONS (4)
  - Discomfort [Unknown]
  - Nausea [Recovered/Resolved]
  - Vomiting [Recovered/Resolved]
  - Diarrhoea [Recovered/Resolved]

NARRATIVE: CASE EVENT DATE: 20230515
